FAERS Safety Report 7199828-7 (Version None)
Quarter: 2010Q4

REPORT INFORMATION
  Report Type: 
  Country: None (occurrence: None)
  Receive Date: 20101228
  Receipt Date: 20101220
  Transmission Date: 20110411
  Serious: Yes (Death, Other)
  Sender: FDA-Public Use
  Company Number: DE-ROCHE-749816

PATIENT

DRUGS (3)
  1. MYCOPHENOLATE MOFETIL [Suspect]
     Indication: IMMUNOSUPPRESSANT DRUG THERAPY
     Route: 065
  2. SIROLIMUS [Suspect]
     Indication: IMMUNOSUPPRESSANT DRUG THERAPY
     Route: 065
  3. STEROID NOS [Suspect]
     Indication: IMMUNOSUPPRESSANT DRUG THERAPY
     Dosage: DISCONTINUED AFTER 6 MONTHS
     Route: 065

REACTIONS (6)
  - CYTOMEGALOVIRUS INFECTION [None]
  - GASTROINTESTINAL TOXICITY [None]
  - IMPAIRED HEALING [None]
  - LUNG ADENOCARCINOMA [None]
  - PERICARDIAL EFFUSION [None]
  - TRANSPLANT REJECTION [None]
